FAERS Safety Report 24005906 (Version 1)
Quarter: 2024Q2

REPORT INFORMATION
  Report Type: Spontaneous
  Country: US (occurrence: None)
  Receive Date: 20240623
  Receipt Date: 20240623
  Transmission Date: 20240717
  Serious: Yes (Other)
  Sender: FDA-Public Use
  Company Number: None

PATIENT
  Age: 25 Year
  Sex: Male
  Weight: 69.75 kg

DRUGS (3)
  1. ZYRTEC [Suspect]
     Active Substance: CETIRIZINE HYDROCHLORIDE
  2. TOPIRAMATE [Concomitant]
     Active Substance: TOPIRAMATE
  3. PANTOPRAZOLE [Concomitant]

REACTIONS (2)
  - Urticaria [None]
  - Pruritus [None]
